FAERS Safety Report 10581143 (Version 1)
Quarter: 2014Q4

REPORT INFORMATION
  Report Type: Spontaneous
  Country: US (occurrence: US)
  Receive Date: 20141113
  Receipt Date: 20141113
  Transmission Date: 20150529
  Serious: Yes (Other)
  Sender: FDA-Public Use
  Company Number: US-TEVA-521552USA

PATIENT
  Sex: Female

DRUGS (3)
  1. SULFONAMIDES [Suspect]
     Active Substance: UNSPECIFIED INGREDIENT
     Indication: URINARY TRACT INFECTION
     Route: 065
  2. SULFA SHAMPOO 2% [Suspect]
     Active Substance: SALICYLIC ACID\SULFUR
  3. COPAXONE [Suspect]
     Active Substance: GLATIRAMER ACETATE
     Indication: MULTIPLE SCLEROSIS
     Dates: start: 2014

REACTIONS (9)
  - Cystitis [Unknown]
  - Urticaria [Recovered/Resolved]
  - Multiple sclerosis relapse [Unknown]
  - Hypertension [Unknown]
  - Swelling face [Unknown]
  - Hypoaesthesia [Unknown]
  - Muscle spasms [Unknown]
  - Urinary tract infection [Unknown]
  - Drug hypersensitivity [Unknown]

NARRATIVE: CASE EVENT DATE: 2013
